FAERS Safety Report 11603436 (Version 1)
Quarter: 2015Q4

REPORT INFORMATION
  Report Type: Spontaneous
  Country: US (occurrence: None)
  Receive Date: 20151006
  Receipt Date: 20151006
  Transmission Date: 20160304
  Serious: No
  Sender: FDA-Public Use
  Company Number: None

PATIENT
  Age: 59 Year
  Sex: Male

DRUGS (3)
  1. RIBASPHERE [Suspect]
     Active Substance: RIBAVIRIN
     Route: 048
  2. HARVONI [Suspect]
     Active Substance: LEDIPASVIR\SOFOSBUVIR
     Indication: HEPATITIS C
     Route: 048
     Dates: start: 20141203
  3. PROCRIT [Suspect]
     Active Substance: ERYTHROPOIETIN
     Route: 058

REACTIONS (3)
  - Fatigue [None]
  - Dizziness [None]
  - Influenza like illness [None]

NARRATIVE: CASE EVENT DATE: 20151003
